FAERS Safety Report 11755029 (Version 1)
Quarter: 2015Q4

REPORT INFORMATION
  Report Type: Spontaneous
  Country: SI (occurrence: SI)
  Receive Date: 20151119
  Receipt Date: 20151119
  Transmission Date: 20160304
  Serious: Yes (Other)
  Sender: FDA-Public Use
  Company Number: SI-INCYTE CORPORATION-2015IN005925

PATIENT
  Age: 48 Year
  Sex: Male

DRUGS (5)
  1. ALOPURINOL [Concomitant]
     Active Substance: ALLOPURINOL
     Indication: PRODUCT USED FOR UNKNOWN INDICATION
     Dosage: 2 DF, QD (2X1 TBL)
     Route: 065
  2. METHYLPREDNISOLONE. [Concomitant]
     Active Substance: METHYLPREDNISOLONE
     Indication: PRODUCT USED FOR UNKNOWN INDICATION
     Dosage: 16 MG,  (TBL)
     Route: 065
  3. ASA [Concomitant]
     Active Substance: ASPIRIN
     Indication: PRODUCT USED FOR UNKNOWN INDICATION
     Dosage: 100 MG,  (TBL)
     Route: 065
  4. INTERFERON [Concomitant]
     Active Substance: INTERFERON
     Indication: PRODUCT USED FOR UNKNOWN INDICATION
     Dosage: 3 M, 2X WEEKLY
     Route: 058
  5. JAKAFI [Suspect]
     Active Substance: RUXOLITINIB
     Indication: MYELOFIBROSIS
     Dosage: 15 MG, BID
     Route: 048
     Dates: start: 201504

REACTIONS (4)
  - Haemoglobin decreased [Not Recovered/Not Resolved]
  - Drug ineffective [Not Recovered/Not Resolved]
  - Red blood cell count decreased [Not Recovered/Not Resolved]
  - Acute myeloid leukaemia [Unknown]

NARRATIVE: CASE EVENT DATE: 201509
